FAERS Safety Report 9308769 (Version 2)
Quarter: 2013Q2

REPORT INFORMATION
  Report Type: Report from Study
  Country: CA (occurrence: CA)
  Receive Date: 20130524
  Receipt Date: 20130611
  Transmission Date: 20140414
  Serious: No
  Sender: FDA-Public Use
  Company Number: CA-ASTRAZENECA-2013SE34717

PATIENT
  Age: 71 Year
  Sex: Male
  Weight: 72.6 kg

DRUGS (6)
  1. BRILINTA [Suspect]
     Indication: ACUTE CORONARY SYNDROME
     Route: 048
     Dates: start: 20130510
  2. CRESTOR [Suspect]
     Route: 048
     Dates: start: 20130510
  3. CHOLESTEROL MEDICATIONS [Suspect]
     Indication: BLOOD CHOLESTEROL ABNORMAL
     Route: 065
  4. ASPIRIN [Concomitant]
     Route: 048
     Dates: start: 20130510
  5. PANTOPRAZOLE [Concomitant]
     Route: 048
     Dates: start: 20130510
  6. AMLODIPINE [Concomitant]

REACTIONS (4)
  - Headache [Not Recovered/Not Resolved]
  - Pain in extremity [Not Recovered/Not Resolved]
  - Arthralgia [Not Recovered/Not Resolved]
  - Muscle spasms [Unknown]
